FAERS Safety Report 6249419-7 (Version None)
Quarter: 2009Q2

REPORT INFORMATION
  Report Type: 
  Country: None (occurrence: None)
  Receive Date: 20090629
  Receipt Date: 20090622
  Transmission Date: 20091009
  Serious: Yes (Hospitalization, Congenital Anomaly)
  Sender: FDA-Public Use
  Company Number: A0681093A

PATIENT
  Sex: Male
  Weight: 4.1 kg

DRUGS (5)
  1. PAXIL [Suspect]
     Indication: DEPRESSION
     Dosage: 20MG UNKNOWN
     Dates: start: 20040101, end: 20040101
  2. PAXIL CR [Suspect]
     Indication: DEPRESSION
     Dosage: 12.5MG UNKNOWN
     Dates: start: 20040813, end: 20041018
  3. VITAMIN TAB [Concomitant]
  4. SINGULAIR [Concomitant]
  5. INHALER [Concomitant]

REACTIONS (7)
  - ATRIAL SEPTAL DEFECT [None]
  - CAESAREAN SECTION [None]
  - CARDIAC MURMUR [None]
  - DRUG EXPOSURE DURING PREGNANCY [None]
  - MATERNAL DRUGS AFFECTING FOETUS [None]
  - PULMONARY ARTERY STENOSIS CONGENITAL [None]
  - PYLORIC STENOSIS [None]
